FAERS Safety Report 11837051 (Version 3)
Quarter: 2016Q2

REPORT INFORMATION
  Report Type: Report from Study
  Country: CA (occurrence: CA)
  Receive Date: 20151215
  Receipt Date: 20160615
  Transmission Date: 20160815
  Serious: Yes (Hospitalization, Other)
  Sender: FDA-Public Use
  Company Number: CA-ABBVIE-15K-028-1516099-00

PATIENT
  Sex: Female
  Weight: 81.72 kg

DRUGS (3)
  1. PREDNISONE. [Suspect]
     Active Substance: PREDNISONE
     Indication: PRODUCT USED FOR UNKNOWN INDICATION
     Dosage: 40MG
     Route: 048
  2. PREDNISONE. [Suspect]
     Active Substance: PREDNISONE
     Dosage: DECREASED TO 10MG
     Route: 048
  3. HUMIRA [Suspect]
     Active Substance: ADALIMUMAB
     Indication: CROHN^S DISEASE
     Route: 058
     Dates: start: 20100504, end: 20160401

REACTIONS (8)
  - Gait disturbance [Unknown]
  - Large intestinal stenosis [Not Recovered/Not Resolved]
  - Crohn^s disease [Unknown]
  - Procedural intestinal perforation [Unknown]
  - Presyncope [Unknown]
  - Muscle spasms [Unknown]
  - Malignant melanoma [Recovering/Resolving]
  - Gastrointestinal disorder [Unknown]
